FAERS Safety Report 25962711 (Version 1)
Quarter: 2025Q4

REPORT INFORMATION
  Report Type: Spontaneous
  Country: US (occurrence: None)
  Receive Date: 20251024
  Receipt Date: 20251024
  Transmission Date: 20260117
  Serious: Yes (Death)
  Sender: FDA-CTU
  Company Number: None

PATIENT
  Age: 79 Year
  Sex: Male

DRUGS (1)
  1. PIRFENIDONE [Suspect]
     Active Substance: PIRFENIDONE
     Indication: Idiopathic pulmonary fibrosis
     Dosage: 267MG TID ORAL ?
     Route: 048
     Dates: start: 20240216, end: 20250925

REACTIONS (6)
  - Fall [None]
  - Hypoxia [None]
  - Pneumonia [None]
  - Respiratory failure [None]
  - Refusal of treatment by patient [None]
  - Refusal of treatment by relative [None]

NARRATIVE: CASE EVENT DATE: 20250925
